FAERS Safety Report 14289457 (Version 1)
Quarter: 2017Q4

REPORT INFORMATION
  Report Type: Spontaneous
  Country: US (occurrence: US)
  Receive Date: 20171214
  Receipt Date: 20171214
  Transmission Date: 20180321
  Serious: No
  Sender: FDA-Public Use
  Company Number: None

PATIENT
  Sex: Male

DRUGS (1)
  1. COUGH DM [Suspect]
     Active Substance: DEXTROMETHORPHAN HYDROBROMIDE
     Indication: COUGH
     Dosage: QUANTITY:1 TEASPOON(S);?
     Route: 048
     Dates: start: 20171212, end: 20171213

REACTIONS (1)
  - Urinary retention [None]

NARRATIVE: CASE EVENT DATE: 20171213
